FAERS Safety Report 14349139 (Version 1)
Quarter: 2018Q1

REPORT INFORMATION
  Report Type: Spontaneous
  Country: US (occurrence: US)
  Receive Date: 20180104
  Receipt Date: 20180104
  Transmission Date: 20180509
  Serious: No
  Sender: FDA-Public Use
  Company Number: US-TEVA-723638ACC

PATIENT
  Sex: Female

DRUGS (1)
  1. DEXTROCAP-A [Suspect]
     Active Substance: DEXTROAMPHETAMINE SULFATE
     Indication: ATTENTION DEFICIT/HYPERACTIVITY DISORDER
     Dates: start: 20161006

REACTIONS (4)
  - Feeling abnormal [Unknown]
  - Anger [Unknown]
  - Product packaging quantity issue [Unknown]
  - Drug ineffective [Unknown]
